FAERS Safety Report 11095274 (Version 1)
Quarter: 2015Q2

REPORT INFORMATION
  Report Type: Spontaneous
  Country: US (occurrence: US)
  Receive Date: 20150506
  Receipt Date: 20150506
  Transmission Date: 20150821
  Serious: No
  Sender: FDA-Public Use
  Company Number: US-SA-2014SA149339

PATIENT
  Age: 65 Year
  Sex: Male

DRUGS (2)
  1. APIDRA SOLOSTAR [Suspect]
     Active Substance: INSULIN GLULISINE
     Indication: TYPE 1 DIABETES MELLITUS
     Dosage: STARTED: 8 - 10 YEARS AGO?DOSING: 12 UNITS BEFORE EACH MEALS DOSE:12 UNIT(S)
     Route: 065
  2. SOLOSTAR [Concomitant]
     Active Substance: DEVICE
     Indication: TYPE 1 DIABETES MELLITUS
     Dosage: STARTED: 8 - 10 YEARS AGO?DOSING: 12 UNITS BEFORE EACH MEALS

REACTIONS (1)
  - Injection site haemorrhage [Unknown]
